FAERS Safety Report 5731779-4 (Version None)
Quarter: 2008Q2

REPORT INFORMATION
  Report Type: 
  Country: None (occurrence: None)
  Receive Date: 20080508
  Receipt Date: 20080501
  Transmission Date: 20081010
  Serious: Yes (Hospitalization, Disabling)
  Sender: FDA-Public Use
  Company Number: GB-ROCHE-558341

PATIENT
  Sex: Female
  Weight: 114 kg

DRUGS (13)
  1. ORLISTAT [Suspect]
     Indication: OBESITY
     Route: 048
     Dates: start: 20071019, end: 20080415
  2. METFORMIN HCL [Concomitant]
     Route: 048
  3. ALDACTONE [Concomitant]
     Route: 048
  4. LASIX [Concomitant]
     Route: 048
  5. DICLOFENAC SODIUM [Concomitant]
     Route: 048
  6. MIRTAZAPINE [Concomitant]
     Route: 048
  7. UNSPECIFIED DRUG [Concomitant]
     Dosage: DRUG REPORTED AS CEROXICILLIN
     Route: 048
  8. DIAZEPAM [Concomitant]
  9. TRAMACET [Concomitant]
  10. TRAMACET [Concomitant]
  11. ROSUVASTATIN [Concomitant]
  12. ASPIRIN [Concomitant]
  13. LEVOTHYROXINE SODIUM [Concomitant]

REACTIONS (2)
  - PAIN IN EXTREMITY [None]
  - SYNOVIAL CYST [None]
